FAERS Safety Report 6359413-3 (Version None)
Quarter: 2009Q3

REPORT INFORMATION
  Report Type: 
  Country: None (occurrence: None)
  Receive Date: 20090917
  Receipt Date: 20090903
  Transmission Date: 20100115
  Serious: Yes (Hospitalization)
  Sender: FDA-Public Use
  Company Number: GB-MYLANLABS-2009S1015695

PATIENT
  Age: 44 Year
  Sex: Male

DRUGS (5)
  1. VENLAFAXINE HCL [Suspect]
     Indication: DEPRESSION
     Route: 048
     Dates: end: 20090517
  2. EPILIM [Concomitant]
     Indication: EPILEPSY
     Route: 048
  3. OLANZAPINE [Concomitant]
     Indication: SCHIZOPHRENIA
     Route: 048
  4. OMEPRAZOLE [Concomitant]
     Indication: DUODENAL ULCER
     Route: 048
  5. SALBUTAMOL [Concomitant]
     Indication: CHRONIC OBSTRUCTIVE PULMONARY DISEASE
     Route: 055

REACTIONS (2)
  - ALCOHOLIC LIVER DISEASE [None]
  - BLOOD SODIUM DECREASED [None]
